FAERS Safety Report 6905282-X (Version None)
Quarter: 2010Q3

REPORT INFORMATION
  Report Type: 
  Country: None (occurrence: None)
  Receive Date: 20100804
  Receipt Date: 20100729
  Transmission Date: 20110219
  Serious: Yes (Death, Life-Threatening, Other)
  Sender: FDA-Public Use
  Company Number: JP-JNJFOC-20100607826

PATIENT
  Sex: Male
  Weight: 60 kg

DRUGS (16)
  1. RISPERDAL [Suspect]
     Indication: SCHIZOPHRENIA
     Route: 048
  2. RISPERDAL [Suspect]
     Route: 048
  3. RISPERDAL [Suspect]
     Route: 048
  4. RISPERDAL [Suspect]
     Route: 048
  5. ROHYPNOL [Suspect]
     Indication: INSOMNIA
     Route: 048
  6. ARTANE [Concomitant]
     Indication: PARKINSONISM
     Route: 048
  7. NEUER [Concomitant]
     Indication: GASTRITIS
     Route: 048
  8. VEGETAMIN-A [Concomitant]
     Indication: SCHIZOPHRENIA
     Route: 048
  9. LEVOMEPROMAZINE MALEATE [Concomitant]
     Route: 065
  10. AMOBAN [Concomitant]
     Indication: INSOMNIA
     Route: 048
  11. PURSENNID [Concomitant]
     Route: 048
  12. MINIPRESS [Concomitant]
     Indication: HYPERTENSION
     Route: 048
  13. NIFEDIPINE [Concomitant]
     Indication: HYPERTENSION
     Route: 048
  14. ALDACTONE [Concomitant]
     Indication: HYPERTENSION
     Route: 048
  15. VOGLIBOSE [Concomitant]
     Indication: TYPE 2 DIABETES MELLITUS
     Route: 048
  16. ABILIFY [Concomitant]
     Indication: SCHIZOPHRENIA
     Route: 048

REACTIONS (10)
  - AZOTAEMIA [None]
  - BRAIN STEM INFARCTION [None]
  - COMA [None]
  - DISEASE RECURRENCE [None]
  - GASTROINTESTINAL HAEMORRHAGE [None]
  - HAEMATEMESIS [None]
  - HYPERGLYCAEMIA [None]
  - NEUROLEPTIC MALIGNANT SYNDROME [None]
  - RENAL FAILURE ACUTE [None]
  - RHABDOMYOLYSIS [None]
